FAERS Safety Report 7914807-7 (Version None)
Quarter: 2011Q4

REPORT INFORMATION
  Report Type: 
  Country: None (occurrence: None)
  Receive Date: 20111115
  Receipt Date: 20111031
  Transmission Date: 20120403
  Serious: Yes (Other)
  Sender: FDA-Public Use
  Company Number: US-PFIZER INC-2011276693

PATIENT
  Sex: Female
  Weight: 0.48 kg

DRUGS (7)
  1. ENOXAPARIN [Suspect]
     Dosage: 30 MG, 2X/DAY
     Route: 064
  2. ENOXAPARIN [Suspect]
     Dosage: UNK
     Route: 064
  3. PANTOPRAZOLE [Suspect]
     Indication: NAUSEA
     Route: 064
  4. OXYGEN [Suspect]
     Dosage: 6 L/MIN
     Route: 064
  5. EPOPROSTENOL [Suspect]
     Dosage: 6 NG/KG/MIN
     Route: 064
  6. BETAMETHASONE [Suspect]
     Route: 064
  7. EPOPROSTENOL SODIUM [Suspect]
     Dosage: 26 NG/KG/MIN
     Route: 064

REACTIONS (4)
  - GROWTH RETARDATION [None]
  - LOW BIRTH WEIGHT BABY [None]
  - MATERNAL EXPOSURE TIMING UNSPECIFIED [None]
  - PREMATURE BABY [None]
